FAERS Safety Report 6643927-2 (Version None)
Quarter: 2010Q1

REPORT INFORMATION
  Report Type: 
  Country: None (occurrence: None)
  Receive Date: 20100317
  Receipt Date: 20100301
  Transmission Date: 20100710
  Serious: Yes (Hospitalization)
  Sender: FDA-Public Use
  Company Number: TCI2010A00576

PATIENT
  Age: 74 Year
  Sex: Male

DRUGS (13)
  1. ACTOS [Suspect]
     Indication: DIABETES MELLITUS
     Dosage: 30 MG (30 MG,1 IN 1 D)  PER ORAL
     Route: 048
     Dates: end: 20090918
  2. ANTIHYPERTENSIVES [Suspect]
     Indication: HYPERTENSION
     Dosage: PER ORAL
     Route: 048
     Dates: start: 20090801, end: 20090918
  3. BASBN (VOGLIBOSE) [Concomitant]
  4. CANDESARTAN CILEXETIL [Concomitant]
  5. NIVADIL (NILVADIPINE) [Concomitant]
  6. NIPOLAZIN (MEQUITAZINE) [Concomitant]
  7. FAMOTIDINE [Concomitant]
  8. PURSENNID (SENNA ALEXANDRINA LEAF) [Concomitant]
  9. DEPAS (ETIZOLAM) [Concomitant]
  10. LOXONIN TAPE (LOXOPROFEN SODIUM) [Concomitant]
  11. MUCODYNE (CARBOCISTEINE) [Concomitant]
  12. PANTOSIN (PANTETHINE) [Concomitant]
  13. MAGNESIUM OXIDE [Concomitant]

REACTIONS (4)
  - DIZZINESS [None]
  - DRUG INTERACTION [None]
  - DYSKINESIA [None]
  - FALL [None]
